FAERS Safety Report 15876706 (Version 1)
Quarter: 2019Q1

REPORT INFORMATION
  Report Type: Spontaneous
  Country: GB (occurrence: FR)
  Receive Date: 20190127
  Receipt Date: 20190127
  Transmission Date: 20190417
  Serious: Yes (Hospitalization)
  Sender: FDA-Public Use
  Company Number: FR-FRESENIUS KABI-FK201900839

PATIENT
  Age: 52 Year
  Sex: Male
  Weight: 74 kg

DRUGS (8)
  1. PROPOFOL (MANUFACTURER UNKNOWN) [Suspect]
     Active Substance: PROPOFOL
     Indication: INDUCTION OF ANAESTHESIA
     Route: 042
     Dates: start: 20181213, end: 20181213
  2. METRONIDAZOLE. [Suspect]
     Active Substance: METRONIDAZOLE
     Indication: ANTIBIOTIC PROPHYLAXIS
     Route: 042
     Dates: start: 20181213, end: 20181213
  3. KETAMINE [Suspect]
     Active Substance: KETAMINE
     Indication: INDUCTION OF ANAESTHESIA
     Route: 042
     Dates: start: 20181213, end: 20181213
  4. ATRACURIUM BESILATE [Suspect]
     Active Substance: ATRACURIUM BESYLATE
     Indication: NEUROMUSCULAR BLOCKING THERAPY
     Route: 042
     Dates: start: 20181213, end: 20181213
  5. TRAMADOL. [Suspect]
     Active Substance: TRAMADOL
     Indication: PERIOPERATIVE ANALGESIA
     Route: 042
     Dates: start: 20181213, end: 20181213
  6. NEFOPAM [Suspect]
     Active Substance: NEFOPAM
     Indication: PERIOPERATIVE ANALGESIA
     Route: 042
     Dates: start: 20181213, end: 20181213
  7. PARACETAMOL (MANUFACTURER UNKNOWN) [Suspect]
     Active Substance: ACETAMINOPHEN
     Indication: PERIOPERATIVE ANALGESIA
     Route: 065
     Dates: start: 20181213, end: 20181213
  8. IBUPROFEN. [Suspect]
     Active Substance: IBUPROFEN
     Indication: INDUCTION OF ANAESTHESIA
     Route: 042
     Dates: start: 20181213, end: 20181213

REACTIONS (4)
  - Tachycardia [Recovered/Resolved]
  - Rash [Recovered/Resolved]
  - Anaphylactic shock [Recovered/Resolved]
  - Hypotension [Recovered/Resolved]

NARRATIVE: CASE EVENT DATE: 20181213
